FAERS Safety Report 6132569-3 (Version None)
Quarter: 2009Q1

REPORT INFORMATION
  Report Type: 
  Country: None (occurrence: None)
  Receive Date: 20090324
  Receipt Date: 20090309
  Transmission Date: 20090719
  Serious: Yes (Other)
  Sender: FDA-Public Use
  Company Number: 2009S1004316

PATIENT
  Age: 78 Year
  Sex: Female

DRUGS (3)
  1. BETAHISTINE (BETAHISTINE) [Suspect]
     Indication: DIZZINESS
     Dosage: 8 MG;TWICE A DAY;ORAL
     Route: 048
     Dates: start: 20060101
  2. FUROSEMIDE [Suspect]
     Indication: OEDEMA
     Dosage: 20 MG;ORAL
     Route: 048
  3. PUNICA GRANATUM (PUNICA GRANATUM) [Suspect]
     Indication: DRUG USE FOR UNKNOWN INDICATION
     Dosage: 1 DF

REACTIONS (2)
  - FOOD INTERACTION [None]
  - GOUT [None]
